FAERS Safety Report 7801773-8 (Version None)
Quarter: 2011Q4

REPORT INFORMATION
  Report Type: 
  Country: None (occurrence: None)
  Receive Date: 20111007
  Receipt Date: 20111005
  Transmission Date: 20120403
  Serious: Yes (Congenital Anomaly)
  Sender: FDA-Public Use
  Company Number: IT-SANOFI-AVENTIS-2011SA065282

PATIENT

DRUGS (1)
  1. PLAQUENIL [Suspect]
     Route: 064

REACTIONS (1)
  - FOETAL MALFORMATION [None]
